FAERS Safety Report 6892029-9 (Version None)
Quarter: 2010Q3

REPORT INFORMATION
  Report Type: 
  Country: None (occurrence: None)
  Receive Date: 20100731
  Receipt Date: 20080109
  Transmission Date: 20110219
  Serious: No
  Sender: FDA-Public Use
  Company Number: US-PFIZER INC-2007094819

PATIENT
  Sex: Male
  Weight: 90.7 kg

DRUGS (4)
  1. AMLODIPINE [Suspect]
     Indication: HYPERTENSION
  2. LYRICA [Suspect]
     Indication: PAIN
     Dosage: FREQUENCY: BID
     Dates: start: 20070101
  3. HYDROCHLOROTHIAZIDE [Suspect]
  4. ZETIA [Concomitant]
     Indication: BLOOD CHOLESTEROL

REACTIONS (8)
  - BLOOD PRESSURE INADEQUATELY CONTROLLED [None]
  - CONFUSIONAL STATE [None]
  - COUGH [None]
  - DIZZINESS [None]
  - DRY MOUTH [None]
  - MEMORY IMPAIRMENT [None]
  - NECK PAIN [None]
  - OEDEMA PERIPHERAL [None]
